FAERS Safety Report 20461320 (Version 3)
Quarter: 2022Q4

REPORT INFORMATION
  Report Type: Spontaneous
  Country: CA (occurrence: CA)
  Receive Date: 20220211
  Receipt Date: 20221116
  Transmission Date: 20230113
  Serious: Yes (Other)
  Sender: FDA-Public Use
  Company Number: CA-PFIZER INC-202200025980

PATIENT
  Age: 76 Year
  Sex: Female

DRUGS (8)
  1. XELJANZ [Suspect]
     Active Substance: TOFACITINIB CITRATE
     Indication: Rheumatoid arthritis
     Dosage: 5 MG, 2X/DAY
     Route: 048
     Dates: start: 20140710
  2. XELJANZ [Suspect]
     Active Substance: TOFACITINIB CITRATE
     Dosage: 5 MG, EVERY 2 DAY
     Route: 048
     Dates: start: 20140710
  3. XELJANZ [Suspect]
     Active Substance: TOFACITINIB CITRATE
     Dosage: 5 MG, 1X/DAY
     Route: 048
     Dates: start: 20190114
  4. VARENICLINE TARTRATE [Concomitant]
     Active Substance: VARENICLINE TARTRATE
     Dosage: 1 DF UNKNOWN DOSE AND FREQUENCY, ONGOING STATUS UNKNOWN
     Route: 048
  5. DEPO-MEDROL [Concomitant]
     Active Substance: METHYLPREDNISOLONE ACETATE
     Dosage: 1 DF (80 MG/ML) ONGOING STATUS UNKNOWN
     Route: 030
  6. PLAQUENIL [Concomitant]
     Active Substance: HYDROXYCHLOROQUINE SULFATE
     Dosage: 1 DF
     Route: 065
  7. XALATAN [Concomitant]
     Active Substance: LATANOPROST
     Dosage: 1 DF (APPLY TO EACH EYE IN THE EVENING)
     Route: 031
  8. LIPITOR [Concomitant]
     Active Substance: ATORVASTATIN CALCIUM
     Dosage: 10 MG, 1X/DAY
     Route: 048

REACTIONS (5)
  - Ovarian cancer [Recovered/Resolved]
  - Pulmonary oedema [Not Recovered/Not Resolved]
  - Surgery [Unknown]
  - Confusional state [Unknown]
  - Off label use [Unknown]
